FAERS Safety Report 4802701-X (Version None)
Quarter: 2005Q4

REPORT INFORMATION
  Report Type: 
  Country: None (occurrence: None)
  Receive Date: 20051014
  Receipt Date: 20050804
  Transmission Date: 20060501
  Serious: Yes (Other)
  Sender: FDA-Public Use
  Company Number: 2005111712

PATIENT
  Sex: Female
  Weight: 86.1834 kg

DRUGS (5)
  1. NEURONTIN [Suspect]
     Indication: NECK PAIN
     Dosage: 1800MG (600MG, 3 IN 1 D)
     Dates: end: 20050101
  2. DARVON [Concomitant]
  3. ADDERALL 10 [Concomitant]
  4. PROZAC [Concomitant]
  5. MAXZIDE [Concomitant]

REACTIONS (8)
  - FATIGUE [None]
  - FEELING ABNORMAL [None]
  - INSOMNIA [None]
  - LETHARGY [None]
  - PAIN [None]
  - PSYCHOMOTOR HYPERACTIVITY [None]
  - SYNCOPE [None]
  - TREMOR [None]
